FAERS Safety Report 7083938-9 (Version None)
Quarter: 2010Q4

REPORT INFORMATION
  Report Type: 
  Country: None (occurrence: None)
  Receive Date: 20101104
  Receipt Date: 20100430
  Transmission Date: 20110411
  Serious: No
  Sender: FDA-Public Use
  Company Number: US-ABBOTT-10P-163-0642551-00

PATIENT
  Sex: Female
  Weight: 98.972 kg

DRUGS (9)
  1. KALETRA [Suspect]
     Indication: HIV TEST POSITIVE
     Dates: start: 20091001
  2. PROMETHAZINE [Concomitant]
     Indication: PRODUCT USED FOR UNKNOWN INDICATION
  3. SULFAMETHOXAZOLE [Concomitant]
     Indication: PRODUCT USED FOR UNKNOWN INDICATION
  4. TRUVADA [Concomitant]
     Indication: DEPRESSION
  5. LETRACETAN [Concomitant]
     Indication: PRODUCT USED FOR UNKNOWN INDICATION
  6. AZITHROMYCIN [Concomitant]
     Indication: PRODUCT USED FOR UNKNOWN INDICATION
  7. XANAX [Concomitant]
     Indication: DEPRESSION
  8. UNKNOWN BP MEDICATION [Concomitant]
     Indication: BLOOD PRESSURE MANAGEMENT
  9. UNKNOWN PAIN MEDICATION [Concomitant]
     Indication: PAIN IN EXTREMITY

REACTIONS (4)
  - DRUG SCREEN NEGATIVE [None]
  - HEADACHE [None]
  - NAUSEA [None]
  - PAIN IN EXTREMITY [None]
